FAERS Safety Report 10966389 (Version 2)
Quarter: 2015Q2

REPORT INFORMATION
  Report Type: Report from Study
  Country: MW (occurrence: MW)
  Receive Date: 20150330
  Receipt Date: 20150427
  Transmission Date: 20150821
  Serious: Yes (Death, Hospitalization, Other)
  Sender: FDA-Public Use
  Company Number: MW-BRISTOL-MYERS SQUIBB COMPANY-BMS-2015-018204

PATIENT
  Age: 26 Year
  Sex: Female
  Weight: 70 kg

DRUGS (4)
  1. EMTRICITABINE W/TENOFOVIR DISOPROXIL FUMARATE [Concomitant]
     Active Substance: EMTRICITABINE\TENOFOVIR DISOPROXIL
     Indication: HIV INFECTION
     Dosage: 1 DF, QD
     Route: 048
     Dates: start: 20140515
  2. ISONIAZID W/RIFAMPICIN [Concomitant]
     Active Substance: ISONIAZID\RIFAMPIN
     Indication: TUBERCULOSIS
     Dosage: 1 DF, QD
     Route: 048
     Dates: start: 20140715, end: 20141107
  3. EFAVIRENZ [Suspect]
     Active Substance: EFAVIRENZ
     Indication: HIV INFECTION
     Dosage: 600 MG, QD
     Route: 048
     Dates: start: 20140515, end: 20150309
  4. RIFAMPICIN/ISONIAZID/PYRAZINAMIDE/ETHAMBUTOL [Concomitant]
     Active Substance: ETHAMBUTOL HYDROCHLORIDE\ISONIAZID\PYRAZINAMIDE\RIFAMPIN
     Indication: TUBERCULOSIS
     Dosage: 600/300/1200/1100 MG
     Route: 048
     Dates: start: 20140516, end: 20140714

REACTIONS (3)
  - Disseminated tuberculosis [Not Recovered/Not Resolved]
  - Non-Hodgkin^s lymphoma [Fatal]
  - Haemoglobin decreased [Unknown]

NARRATIVE: CASE EVENT DATE: 20150310
